FAERS Safety Report 18106546 (Version 2)
Quarter: 2020Q3

REPORT INFORMATION
  Report Type: Report from Study
  Country: US (occurrence: US)
  Receive Date: 20200803
  Receipt Date: 20200809
  Transmission Date: 20201103
  Serious: No
  Sender: FDA-Public Use
  Company Number: US-SA-2020SA199972

PATIENT

DRUGS (2)
  1. DUPILUMAB [Suspect]
     Active Substance: DUPILUMAB
     Dosage: 300 MG, QOW
     Route: 058
  2. DUPILUMAB [Suspect]
     Active Substance: DUPILUMAB
     Indication: ASTHMA
     Dosage: 600 MG, 1X
     Route: 058

REACTIONS (3)
  - Exposure to SARS-CoV-2 [Recovered/Resolved]
  - Intercepted product storage error [Unknown]
  - Off label use [Unknown]
